FAERS Safety Report 19190932 (Version 1)
Quarter: 2021Q2

REPORT INFORMATION
  Report Type: Spontaneous
  Country: IT (occurrence: IT)
  Receive Date: 20210428
  Receipt Date: 20210428
  Transmission Date: 20210717
  Serious: Yes (Death, Other)
  Sender: FDA-Public Use
  Company Number: IT-ELI_LILLY_AND_COMPANY-IT202104009412

PATIENT
  Sex: Female

DRUGS (2)
  1. RAMUCIRUMAB [Suspect]
     Active Substance: RAMUCIRUMAB
     Indication: INTESTINAL ADENOCARCINOMA
     Dosage: UNK, UNKNOWN
     Route: 065
  2. PACLITAXEL. [Concomitant]
     Active Substance: PACLITAXEL
     Indication: INTESTINAL ADENOCARCINOMA
     Dosage: UNK, UNKNOWN
     Route: 065

REACTIONS (7)
  - Malignant neoplasm progression [Unknown]
  - General physical health deterioration [Unknown]
  - Neutropenia [Unknown]
  - Diarrhoea [Unknown]
  - Aphthous ulcer [Unknown]
  - Off label use [Unknown]
  - Death [Fatal]
